FAERS Safety Report 19365380 (Version 1)
Quarter: 2021Q2

REPORT INFORMATION
  Report Type: Spontaneous
  Country: US (occurrence: US)
  Receive Date: 20210603
  Receipt Date: 20210603
  Transmission Date: 20210717
  Serious: No
  Sender: FDA-Public Use
  Company Number: None

PATIENT

DRUGS (1)
  1. CASODEX [Suspect]
     Active Substance: BICALUTAMIDE

REACTIONS (1)
  - Liver disorder [None]
